FAERS Safety Report 8887741 (Version 1)
Quarter: 2012Q4

REPORT INFORMATION
  Report Type: 
  Country: US (occurrence: US)
  Receive Date: 20121106
  Receipt Date: 20121106
  Transmission Date: 20130627
  Serious: No
  Sender: FDA-Public Use
  Company Number: US-ASTRAZENECA-2012SE16891

PATIENT
  Age: 81 Year
  Sex: Female
  Weight: 63.5 kg

DRUGS (3)
  1. TENORMIN [Suspect]
     Indication: HYPERTENSION
     Dosage: 25 MG IN THE MORNING AND 25 MG AT NIGHT
     Route: 048
     Dates: start: 2011
  2. IMDUR [Concomitant]
     Indication: HYPERTENSION
  3. LASIX [Concomitant]

REACTIONS (13)
  - Tinnitus [Unknown]
  - Blood pressure fluctuation [Unknown]
  - Depressed mood [Unknown]
  - Weight increased [Unknown]
  - Headache [Unknown]
  - Peripheral coldness [Unknown]
  - Dizziness [Unknown]
  - Dizziness [Unknown]
  - Fatigue [Unknown]
  - Somnolence [Unknown]
  - Sleep terror [Unknown]
  - Drug ineffective [Unknown]
  - Off label use [Unknown]
